FAERS Safety Report 11807953 (Version 1)
Quarter: 2015Q4

REPORT INFORMATION
  Report Type: Other
  Country: CN (occurrence: CN)
  Receive Date: 20151207
  Receipt Date: 20151207
  Transmission Date: 20160305
  Serious: Yes (Hospitalization)
  Sender: FDA-Public Use
  Company Number: CN-NSR_02283_2015

PATIENT
  Age: 75 Year
  Sex: Female

DRUGS (8)
  1. WARFARIN [Suspect]
     Active Substance: WARFARIN
     Indication: ATRIAL FIBRILLATION
     Dosage: 1.5 MG/ODD-NUMBERED DAYS AND 2.25 MG/EVEN-NUMBERED DAY
  2. FOSINOPRIL [Concomitant]
     Active Substance: FOSINOPRIL
     Indication: HYPERTENSION
  3. TRAMADOL. [Suspect]
     Active Substance: TRAMADOL
     Indication: OSTEOARTHRITIS
     Route: 048
  4. NOVOLIN 30R [Concomitant]
     Active Substance: INSULIN HUMAN
     Indication: TYPE 2 DIABETES MELLITUS
     Route: 058
  5. TRAMADOL. [Suspect]
     Active Substance: TRAMADOL
     Indication: MUSCULOSKELETAL PAIN
     Route: 048
  6. MOXIFLOXACIN. [Concomitant]
     Active Substance: MOXIFLOXACIN
     Indication: URINARY TRACT INFECTION
     Dosage: DF
  7. METOPROLOL TARTRATE. [Concomitant]
     Active Substance: METOPROLOL TARTRATE
  8. AMIODARONE [Concomitant]
     Active Substance: AMIODARONE

REACTIONS (7)
  - Drug interaction [Recovered/Resolved]
  - Overdose [Recovered/Resolved]
  - Haematuria [Recovering/Resolving]
  - Pollakiuria [Unknown]
  - Haemorrhage [Recovering/Resolving]
  - Dysuria [Recovered/Resolved]
  - Ecchymosis [Recovering/Resolving]
